FAERS Safety Report 9619649 (Version 3)
Quarter: 2013Q4

REPORT INFORMATION
  Report Type: Report from Study
  Country: ES (occurrence: ES)
  Receive Date: 20131014
  Receipt Date: 20131016
  Transmission Date: 20140711
  Serious: Yes (Hospitalization)
  Sender: FDA-Public Use
  Company Number: PHHO2013ES012848

PATIENT
  Sex: 0

DRUGS (6)
  1. AFINITOR [Suspect]
     Indication: BREAST CANCER METASTATIC
     Dosage: 10 MG, QD
     Route: 048
     Dates: start: 20130606, end: 20130720
  2. EXEMESTANE [Suspect]
     Indication: BREAST CANCER METASTATIC
     Dosage: 25 MG, QD
     Route: 048
     Dates: start: 20130606, end: 20130720
  3. FENTANYL [Concomitant]
     Indication: BONE PAIN
     Dosage: 1 DF (72^5 UG 1/2 PARDS), Q72H
     Dates: start: 20130520, end: 20130720
  4. FENTANYL [Concomitant]
     Dosage: UNK
     Dates: start: 20130720
  5. PREGABALINA [Concomitant]
     Indication: BONE PAIN
     Dosage: 25 MG, QD
     Dates: start: 20130520, end: 20130720
  6. PREGABALINA [Concomitant]
     Dosage: UNK
     Dates: start: 20130720

REACTIONS (2)
  - Metastases to bone [Recovered/Resolved with Sequelae]
  - Malignant neoplasm progression [Recovered/Resolved with Sequelae]
